FAERS Safety Report 10083231 (Version 3)
Quarter: 2014Q3

REPORT INFORMATION
  Report Type: Spontaneous
  Country: US (occurrence: US)
  Receive Date: 20140417
  Receipt Date: 20140707
  Transmission Date: 20150326
  Serious: Yes (Death, Life-Threatening, Hospitalization, Other)
  Sender: FDA-Public Use
  Company Number: US-ROCHE-1253031

PATIENT
  Sex: Male

DRUGS (3)
  1. XELODA [Suspect]
     Active Substance: CAPECITABINE
     Indication: COLON CANCER
     Route: 065
  2. AVASTIN [Suspect]
     Active Substance: BEVACIZUMAB
     Indication: COLON CANCER
  3. AVASTIN [Suspect]
     Active Substance: BEVACIZUMAB
     Indication: COLORECTAL CANCER METASTATIC
     Route: 042
     Dates: start: 2013

REACTIONS (15)
  - Osteonecrosis of jaw [Not Recovered/Not Resolved]
  - Gastrointestinal infection [Not Recovered/Not Resolved]
  - Fistula [Unknown]
  - Asthenia [Not Recovered/Not Resolved]
  - Oedema peripheral [Not Recovered/Not Resolved]
  - Abscess [Fatal]
  - Malaise [Unknown]
  - Catheter site discharge [Not Recovered/Not Resolved]
  - Abscess intestinal [Not Recovered/Not Resolved]
  - Skin fragility [Not Recovered/Not Resolved]
  - Duodenal perforation [Not Recovered/Not Resolved]
  - Weight decreased [Not Recovered/Not Resolved]
  - Ascites [Not Recovered/Not Resolved]
  - Malnutrition [Not Recovered/Not Resolved]
  - Duodenal fistula [Not Recovered/Not Resolved]
